FAERS Safety Report 8887105 (Version 1)
Quarter: 2012Q4

REPORT INFORMATION
  Report Type: 
  Country: US (occurrence: US)
  Receive Date: 20121105
  Receipt Date: 20121105
  Transmission Date: 20130627
  Serious: Yes (Hospitalization, Other)
  Sender: FDA-Public Use
  Company Number: US-ELI_LILLY_AND_COMPANY-US201209006723

PATIENT
  Age: 66 Year
  Sex: Male
  Weight: 102.49 kg

DRUGS (8)
  1. BYDUREON [Suspect]
     Indication: TYPE 2 DIABETES MELLITUS
     Dosage: 2 mg, UNK
     Route: 058
     Dates: start: 20120815, end: 20120906
  2. COUMADIN [Concomitant]
     Dosage: UNK
  3. LISINOPRIL [Concomitant]
     Dosage: UNK
  4. METFORMIN [Concomitant]
     Dosage: UNK
  5. NEURONTIN [Concomitant]
     Dosage: 300 mg, UNK
     Dates: start: 1999
  6. PRILOSEC [Concomitant]
     Dosage: UNK
  7. LIPID MODIFYING AGENTS [Concomitant]
     Dosage: UNK
  8. AMIODARONE [Concomitant]
     Indication: SUPRAVENTRICULAR TACHYCARDIA
     Dosage: UNK
     Dates: start: 1998

REACTIONS (5)
  - Atrial fibrillation [Unknown]
  - Pancreatitis [Recovered/Resolved]
  - Barrett^s oesophagus [Unknown]
  - Weight decreased [Unknown]
  - Abdominal pain [Unknown]
